FAERS Safety Report 14935206 (Version 1)
Quarter: 2018Q2

REPORT INFORMATION
  Report Type: Spontaneous
  Country: US (occurrence: US)
  Receive Date: 20180524
  Receipt Date: 20180524
  Transmission Date: 20180711
  Serious: Yes (Death, Hospitalization, Other)
  Sender: FDA-Public Use
  Company Number: US-BAYER-2018-093584

PATIENT
  Age: 49 Year
  Sex: Male

DRUGS (5)
  1. SODIUM POLYSTYRENE SULFONATE. [Concomitant]
     Active Substance: SODIUM POLYSTYRENE SULFONATE
  2. FUROSEMIDE. [Concomitant]
     Active Substance: FUROSEMIDE
  3. RASBURICASE [Concomitant]
     Active Substance: RASBURICASE
     Dosage: 10 MG
     Route: 042
  4. MIDODRINE [Concomitant]
     Active Substance: MIDODRINE
  5. SORAFENIB (RAF KINASE INHIBITOR) [Suspect]
     Active Substance: SORAFENIB
     Indication: HEPATOCELLULAR CARCINOMA
     Dosage: 200 MG, BID
     Route: 048

REACTIONS (6)
  - Acidosis [None]
  - Generalised oedema [None]
  - Hypoxia [None]
  - Oliguria [None]
  - Tumour lysis syndrome [Fatal]
  - Cardio-respiratory arrest [Fatal]
